FAERS Safety Report 7326657-3 (Version None)
Quarter: 2011Q1

REPORT INFORMATION
  Report Type: 
  Country: None (occurrence: None)
  Receive Date: 20110216
  Receipt Date: 20110207
  Transmission Date: 20110831
  Serious: Yes (Death, Hospitalization)
  Sender: FDA-Public Use
  Company Number: 2010SP063438

PATIENT
  Age: 80 Year
  Sex: Female

DRUGS (12)
  1. ONDANSETRON /00955302/ [Concomitant]
  2. FLECAINIDE ACETATE [Concomitant]
  3. PRAMIPEXOLE DIHYDROCHLORIDE [Concomitant]
  4. FAMOTIDINE [Concomitant]
  5. MALTODEXTRIN [Concomitant]
  6. ACETYLSALICYLIC ACID [Concomitant]
  7. CALCIUM CARBONATE [Concomitant]
  8. MULTI-VITAMIN [Concomitant]
  9. TEMOZOLOMIDE [Suspect]
     Indication: GLIOBLASTOMA MULTIFORME
     Dosage: 250 MG;QD;IV
     Route: 042
     Dates: start: 20100928, end: 20101002
  10. METOCLOPRAMIDE HYDROCHLORIDE [Concomitant]
  11. HYDROCODONE BITARTRATE AND ACETAMINOPHEN [Concomitant]
  12. DOCUSATE SODIUM [Concomitant]

REACTIONS (13)
  - GLIOBLASTOMA MULTIFORME [None]
  - NEOPLASM MALIGNANT [None]
  - HALLUCINATION [None]
  - BRAIN MIDLINE SHIFT [None]
  - CONVULSION [None]
  - DYSPHAGIA [None]
  - THROMBOCYTOPENIA [None]
  - MENTAL IMPAIRMENT [None]
  - UNRESPONSIVE TO STIMULI [None]
  - CEREBRAL HAEMORRHAGE [None]
  - INCONTINENCE [None]
  - CONSTIPATION [None]
  - MYOPATHY [None]
